FAERS Safety Report 9430742 (Version 1)
Quarter: 2013Q3

REPORT INFORMATION
  Report Type: Report from Study
  Country: US (occurrence: US)
  Receive Date: 20130730
  Receipt Date: 20130730
  Transmission Date: 20140515
  Serious: No
  Sender: FDA-Public Use
  Company Number: US-ABBOTT-13P-163-1099019-00

PATIENT
  Sex: Female

DRUGS (3)
  1. NIASPAN (COATED) [Suspect]
     Indication: PRODUCT USED FOR UNKNOWN INDICATION
     Dosage: AT BEDTIME
     Dates: start: 20130429
  2. NIASPAN (COATED) [Suspect]
     Dates: start: 201204
  3. COUMADIN [Concomitant]
     Indication: PRODUCT USED FOR UNKNOWN INDICATION
     Dosage: DAILY WITH ^GOOD COUMADIN LEVELS^

REACTIONS (3)
  - Inappropriate schedule of drug administration [Recovering/Resolving]
  - Pruritus [Recovering/Resolving]
  - Miliaria [Not Recovered/Not Resolved]
